FAERS Safety Report 4442989-0 (Version None)
Quarter: 2004Q3

REPORT INFORMATION
  Report Type: 
  Country: None (occurrence: None)
  Receive Date: 20040903
  Receipt Date: 20040630
  Transmission Date: 20050211
  Serious: Yes (Other)
  Sender: FDA-Public Use
  Company Number: 2004UW13547

PATIENT
  Age: 73 Year
  Sex: Female
  Weight: 97.5234 kg

DRUGS (6)
  1. CRESTOR [Suspect]
     Indication: BLOOD CHOLESTEROL INCREASED
     Dosage: 10 MG HS PO
     Route: 048
     Dates: start: 20040201
  2. DIOVAN [Concomitant]
  3. PREVACID [Concomitant]
  4. VITAMIN [Concomitant]
  5. GLUCOSAMINE [Concomitant]
  6. ASPIRIN [Concomitant]

REACTIONS (2)
  - OEDEMA PERIPHERAL [None]
  - PAIN IN EXTREMITY [None]
